FAERS Safety Report 19820419 (Version 1)
Quarter: 2021Q3

REPORT INFORMATION
  Report Type: Spontaneous
  Country: US (occurrence: US)
  Receive Date: 20210910
  Receipt Date: 20210910
  Transmission Date: 20211014
  Serious: Yes (Life-Threatening, Hospitalization, Disabling)
  Sender: FDA-Public Use
  Company Number: None

PATIENT
  Age: 28 Year
  Sex: Female

DRUGS (3)
  1. ZOLOFT [Concomitant]
     Active Substance: SERTRALINE HYDROCHLORIDE
  2. PHEXXI [Suspect]
     Active Substance: CITRIC ACID MONOHYDRATE\LACTIC ACID, L-\POTASSIUM BITARTRATE
     Indication: CONTRACEPTION
     Route: 067
     Dates: start: 20210315, end: 20210425
  3. PRENATAL VITAMIN [Concomitant]
     Active Substance: VITAMINS

REACTIONS (4)
  - Sepsis [None]
  - Vocal cord paralysis [None]
  - Pneumothorax [None]
  - Kidney infection [None]

NARRATIVE: CASE EVENT DATE: 20210427
